FAERS Safety Report 5223426-5 (Version None)
Quarter: 2007Q1

REPORT INFORMATION
  Report Type: 
  Country: None (occurrence: None)
  Receive Date: 20070125
  Receipt Date: 20070111
  Transmission Date: 20070707
  Serious: Yes (Other)
  Sender: FDA-Public Use
  Company Number: 15521

PATIENT
  Age: 28 Year
  Sex: Female

DRUGS (6)
  1. CYTARABINE [Suspect]
     Indication: ACUTE MYELOID LEUKAEMIA
     Dosage: 2 DF FREQ
  2. DAUNORUBICIN HCL [Suspect]
     Indication: ACUTE MYELOID LEUKAEMIA
     Dosage: 2 DF FREQ
  3. FLUDARA [Suspect]
     Indication: ACUTE MYELOID LEUKAEMIA
     Dosage: 2 DF FREQ
  4. NEUPOGEN [Suspect]
     Indication: ACUTE MYELOID LEUKAEMIA
     Dosage: 2 DF FREQ UNK UNK
  5. IDARUBICIN HCL [Suspect]
     Indication: ACUTE MYELOID LEUKAEMIA
     Dosage: 2 DF FREQ UNK UNK
  6. THIOGUANINE [Suspect]
     Indication: ACUTE MYELOID LEUKAEMIA
     Dosage: 2 DF FREQ UNK UNK

REACTIONS (2)
  - APLASIA [None]
  - SQUAMOUS CELL CARCINOMA [None]
